FAERS Safety Report 13022769 (Version 3)
Quarter: 2017Q4

REPORT INFORMATION
  Report Type: Spontaneous
  Country: DE (occurrence: DE)
  Receive Date: 20161213
  Receipt Date: 20171023
  Transmission Date: 20180320
  Serious: Yes (Congenital Anomaly, Other)
  Sender: FDA-Public Use
  Company Number: DE-TEVA-716919GER

PATIENT
  Age: 37 Year
  Sex: Female
  Weight: 70 kg

DRUGS (4)
  1. L-THYROXIN [Concomitant]
     Active Substance: LEVOTHYROXINE SODIUM
     Indication: BLOOD THYROID STIMULATING HORMONE INCREASED
     Dosage: 50 MICROGRAM DAILY; MEDICATION WAS TAKEN BY THE MOTHER/PATIENT
     Route: 065
  2. CITALOPRAM [Suspect]
     Active Substance: CITALOPRAM HYDROBROMIDE
     Indication: ANXIETY DISORDER
     Dosage: 20 MILLIGRAM DAILY; THE SUSPECT MEDICATION WAS TAKEN BY THE FATHER
     Route: 065
     Dates: start: 20110801, end: 20151001
  3. FOLIO FORTE [Concomitant]
     Active Substance: FOLIC ACID\VITAMINS
     Dosage: MEDICATION WAS TAKEN BY THE MOTHER/PATIENT
     Route: 065
  4. MARCUMAR [Concomitant]
     Active Substance: PHENPROCOUMON
     Indication: HYPERCOAGULATION
     Dosage: 3 MILLIGRAM DAILY; MEDICATION WAS TAKEN BY THE FATHER
     Route: 065
     Dates: start: 20040701

REACTIONS (3)
  - Paternal exposure timing unspecified [Unknown]
  - Abortion spontaneous [Recovered/Resolved]
  - Foetal chromosome abnormality [Recovered/Resolved]
